FAERS Safety Report 10681744 (Version 1)
Quarter: 2014Q4

REPORT INFORMATION
  Report Type: Spontaneous
  Country: IT (occurrence: None)
  Receive Date: 20141224
  Receipt Date: 20141224
  Transmission Date: 20150529
  Serious: Yes (Other)
  Sender: FDA-Public Use
  Company Number: FK201406428

PATIENT
  Age: 66 Year
  Sex: Male
  Weight: 95 kg

DRUGS (4)
  1. OXALIPLATIN (MANUFACTURER UNKNOWN) (OXALIPLATIN) (OXALIPLATIN) [Suspect]
     Active Substance: OXALIPLATIN
     Indication: COLON CANCER METASTATIC
     Dosage: CYCLICAL INTRAVENOUS (NOT OTHERWISE SPECIFIED)
     Route: 042
     Dates: start: 20140909, end: 20141126
  2. AVASTIN [Suspect]
     Active Substance: BEVACIZUMAB
     Indication: COLON CANCER METASTATIC
     Dosage: 23.4 MG, 1 D, INTRAVENOUS (NOT OTHERWISE SPECIFIED)
     Route: 042
     Dates: start: 20140909, end: 20141126
  3. LEVOFOLINIC ACID (LEVOFOLIC ACID) [Concomitant]
  4. FLUOROURACIL (FLUOROURACIL) (FLUOROURACIL) [Suspect]
     Active Substance: FLUOROURACIL
     Indication: COLON CANCER METASTATIC
     Dosage: 4500 MG , CYCLICAL, INTRAVENOUS DRIP
     Route: 040
     Dates: start: 20140909, end: 20141126

REACTIONS (1)
  - Iron deficiency anaemia [None]

NARRATIVE: CASE EVENT DATE: 20141106
